FAERS Safety Report 18918765 (Version 4)
Quarter: 2021Q1

REPORT INFORMATION
  Report Type: Report from Study
  Country: US (occurrence: US)
  Receive Date: 20210220
  Receipt Date: 20210329
  Transmission Date: 20210420
  Serious: Yes (Hospitalization)
  Sender: FDA-Public Use
  Company Number: NVSC2021US038391

PATIENT
  Age: 51 Year
  Sex: Male

DRUGS (2)
  1. LASIX [Suspect]
     Active Substance: FUROSEMIDE
     Indication: PRODUCT USED FOR UNKNOWN INDICATION
     Dosage: UNK
     Route: 065
  2. ENTRESTO [Suspect]
     Active Substance: SACUBITRIL\VALSARTAN
     Indication: CARDIAC VALVE DISEASE
     Dosage: UNK UNK, BID
     Route: 048
     Dates: start: 202101

REACTIONS (4)
  - Weight decreased [Recovering/Resolving]
  - Product use in unapproved indication [Unknown]
  - Fluid overload [Recovering/Resolving]
  - Wrong technique in product usage process [Unknown]

NARRATIVE: CASE EVENT DATE: 202101
